FAERS Safety Report 9688377 (Version 2)
Quarter: 2013Q4

REPORT INFORMATION
  Report Type: Spontaneous
  Country: US (occurrence: US)
  Receive Date: 20131114
  Receipt Date: 20131127
  Transmission Date: 20140711
  Serious: Yes (Life-Threatening, Other)
  Sender: FDA-Public Use
  Company Number: US-ABBVIE-13P-163-1167436-00

PATIENT
  Sex: Female

DRUGS (7)
  1. DEPAKOTE ER [Suspect]
     Indication: PRODUCT USED FOR UNKNOWN INDICATION
     Dates: start: 2007, end: 2008
  2. DEPAKOTE ER [Suspect]
     Dates: start: 2008
  3. XANAX [Concomitant]
     Indication: ANXIETY
  4. SOMA [Concomitant]
     Indication: MUSCLE SPASMS
  5. KLONOPIN [Concomitant]
     Indication: ANXIETY
  6. OXYCONTIN [Concomitant]
     Indication: PAIN
  7. OXYCODONE [Concomitant]
     Indication: PAIN

REACTIONS (8)
  - Life support [Recovered/Resolved]
  - Convulsion [Unknown]
  - Drug dose omission [Unknown]
  - Convulsion [Recovered/Resolved]
  - Drug dose omission [Recovered/Resolved]
  - Poor quality sleep [Not Recovered/Not Resolved]
  - Convulsion [Recovered/Resolved]
  - Underdose [Recovered/Resolved]
